FAERS Safety Report 5824654-8 (Version None)
Quarter: 2008Q3

REPORT INFORMATION
  Report Type: 
  Country: None (occurrence: None)
  Receive Date: 20080721
  Receipt Date: 20080721
  Transmission Date: 20090109
  Serious: Yes (Hospitalization)
  Sender: FDA-Public Use
  Company Number: 000#5#2008-00059

PATIENT
  Age: 51 Year
  Sex: Female

DRUGS (33)
  1. ROTIGOTINE (DOSE UNKNOWN) , PATCH (SILICONE) (ROTIGOTINE) [Suspect]
     Indication: PARKINSON'S DISEASE
     Dosage: SEE IMAGE
     Route: 062
     Dates: start: 20030616, end: 20080201
  2. ROTIGOTINE (DOSE UNKNOWN) , PATCH (SILICONE) (ROTIGOTINE) [Suspect]
     Indication: PARKINSON'S DISEASE
     Dosage: SEE IMAGE
     Route: 062
     Dates: start: 20080201, end: 20080316
  3. ROTIGOTINE (DOSE UNKNOWN) , PATCH (SILICONE) (ROTIGOTINE) [Suspect]
     Indication: PARKINSON'S DISEASE
     Dosage: SEE IMAGE
     Route: 062
     Dates: start: 20080317
  4. DIAZEPAM [Concomitant]
  5. TRIMETHOPRIM [Concomitant]
  6. CARBIDOPA, LEVODOPA (CARBIDOPA, LEVODOPA) [Concomitant]
  7. BENSERAZIDE HYDROCHLORIDE, LEVODOPA (BENSERAZIDE HYDROCHLORIDE, LEVODO [Concomitant]
  8. ENTACAPONE (ENTACAPONE) [Concomitant]
  9. PROPRANOLOL [Concomitant]
  10. SERTRALINE (SERTRALINE HYDROCHLORIDE) [Concomitant]
  11. AMANTADINE HCL [Concomitant]
  12. ACETAMINOPHEN [Concomitant]
  13. CARBIDOPA, LEVODOPA (CARBIDOPA, LEVODOPA) [Concomitant]
  14. OXYCODONE HCL [Concomitant]
  15. CODEINE PHOSPHATE (CODEINE PHOSPHATE) [Concomitant]
  16. CODEINE PHOSPHATE, PARACETAMOL (CODEINE PHOSPHATE, PARACETAMOL) [Concomitant]
  17. DICLOFENAC SODIUM [Concomitant]
  18. ACETYLSALICYLIC ACID SRT [Concomitant]
  19. TEMAZEPAM [Concomitant]
  20. SODIUM BICARBONATE (CITRIC ACID, SODIUM BICARBONATE, SODIUM CITRATE, T [Concomitant]
  21. CEPHALEXIN [Concomitant]
  22. OLANZAPINE [Concomitant]
  23. MIDAZOLAM HCL [Concomitant]
  24. CLONAZEPAM [Concomitant]
  25. RIVASTIGMINE TARTRATE [Concomitant]
  26. QUETIAPINE FUMARATE [Concomitant]
  27. DOCUSATE SODIUM, SENNOSIDE A+B (DOCUSATE SODIUM, SENNOSIDE A+B) [Concomitant]
  28. MACROGOL, POTASSIUM CHLORIDE, SODIUM CHLORIDE, SODIUM BICARBONATE (MAC [Concomitant]
  29. SODIUM LAURYL SULFOACETATE, SODIUM CITRATE (SODIUM CITRATE, SODIUM LAU [Concomitant]
  30. LACTULOSE [Concomitant]
  31. GLYCEROL (GLYCEROL) [Concomitant]
  32. SODIUM PHOSPHATE, SODIUM PHOSPHATE DIBASIC (SODIUM PHOSPHATE, SODIUM P [Concomitant]
  33. GLYCERYL TRINITRATE (GLYCERYL TRINITRATE) [Concomitant]

REACTIONS (11)
  - ANXIETY [None]
  - BURSITIS [None]
  - CHEST DISCOMFORT [None]
  - CONDITION AGGRAVATED [None]
  - INCORRECT DOSE ADMINISTERED [None]
  - MANIA [None]
  - MUSCULOSKELETAL PAIN [None]
  - PALPITATIONS [None]
  - PARKINSON'S DISEASE [None]
  - PSYCHOTIC DISORDER [None]
  - SELF-MEDICATION [None]
